FAERS Safety Report 12928743 (Version 1)
Quarter: 2016Q4

REPORT INFORMATION
  Report Type: Spontaneous
  Country: ES (occurrence: ES)
  Receive Date: 20161110
  Receipt Date: 20161110
  Transmission Date: 20170207
  Serious: Yes (Life-Threatening, Hospitalization, Other)
  Sender: FDA-Public Use
  Company Number: ES-ELI_LILLY_AND_COMPANY-ES201611002272

PATIENT
  Age: 42 Year
  Sex: Male

DRUGS (10)
  1. HALOPERIDOL. [Interacting]
     Active Substance: HALOPERIDOL
     Indication: SCHIZOPHRENIA
     Dosage: 5 MG, TID
     Route: 048
     Dates: start: 20150207, end: 20150531
  2. ALCOHOL. [Concomitant]
     Active Substance: ALCOHOL
     Dosage: 2 BEERS A DAY
     Route: 065
  3. ZYPREXA [Suspect]
     Active Substance: OLANZAPINE
     Indication: SCHIZOPHRENIA
     Dosage: 10 MG, QD
     Route: 048
     Dates: start: 20150207
  4. HALOPERIDOL. [Interacting]
     Active Substance: HALOPERIDOL
     Dosage: 150 MG, QD
     Route: 048
     Dates: start: 20150430, end: 20150430
  5. ESCITALOPRAM [Interacting]
     Active Substance: ESCITALOPRAM OXALATE
     Dosage: 400 MG, QD
     Route: 048
     Dates: start: 20150430, end: 20150430
  6. COCAINE [Concomitant]
     Active Substance: COCAINE
     Dosage: UNK, UNKNOWN
     Route: 042
  7. XEPLION [Concomitant]
     Active Substance: PALIPERIDONE PALMITATE
     Indication: SCHIZOPHRENIA
     Dosage: 150 MG, MONTHLY (1/M)
     Route: 030
     Dates: start: 20150207
  8. COCAINE [Concomitant]
     Active Substance: COCAINE
     Dosage: UNK, UNKNOWN
     Route: 055
  9. ESCITALOPRAM [Interacting]
     Active Substance: ESCITALOPRAM OXALATE
     Indication: SCHIZOPHRENIA
     Dosage: 20 MG, QD
     Route: 048
     Dates: start: 20150207
  10. ZYPREXA [Interacting]
     Active Substance: OLANZAPINE
     Dosage: 140 MG, QD
     Route: 048
     Dates: start: 20150430, end: 20150430

REACTIONS (7)
  - Pleural effusion [Unknown]
  - Drug interaction [Unknown]
  - Suicide attempt [Unknown]
  - Hepatomegaly [Unknown]
  - Overdose [Unknown]
  - Neuroleptic malignant syndrome [Recovered/Resolved]
  - Acute kidney injury [Recovered/Resolved]

NARRATIVE: CASE EVENT DATE: 20150430
